FAERS Safety Report 24071688 (Version 2)
Quarter: 2024Q3

REPORT INFORMATION
  Report Type: Report from Study
  Country: CN (occurrence: CN)
  Receive Date: 20240710
  Receipt Date: 20240822
  Transmission Date: 20241016
  Serious: Yes (Other)
  Sender: ROCHE
  Company Number: CN-ROCHE-3549348

PATIENT
  Age: 7 Month

DRUGS (12)
  1. EVRYSDI [Suspect]
     Active Substance: RISDIPLAM
     Indication: Spinal muscular atrophy
     Route: 048
     Dates: start: 20240114
  2. TOBRAMYCIN [Concomitant]
     Active Substance: TOBRAMYCIN\TOBRAMYCIN SULFATE
  3. OFLOXACIN [Concomitant]
     Active Substance: OFLOXACIN
  4. CEFOTAXIME SODIUM [Concomitant]
     Active Substance: CEFOTAXIME SODIUM
  5. AMBROXOL [Concomitant]
     Active Substance: AMBROXOL
  6. METHYLPREDNISOLONE [Concomitant]
     Active Substance: METHYLPREDNISOLONE
  7. INTERFERON [Concomitant]
     Active Substance: INTERFERON
  8. BUDESONIDE [Concomitant]
     Active Substance: BUDESONIDE
  9. TERBUTALINE [Concomitant]
     Active Substance: TERBUTALINE
  10. IPRATROPIUM BROMIDE [Concomitant]
     Active Substance: IPRATROPIUM BROMIDE\IPRATROPIUM BROMIDE ANHYDROUS
  11. MONTELUKAST [Concomitant]
     Active Substance: MONTELUKAST SODIUM
  12. CLOSTRIDIUM BUTYRICUM SPORES STRAIN M-55 [Concomitant]
     Active Substance: CLOSTRIDIUM BUTYRICUM SPORES STRAIN M-55

REACTIONS (2)
  - Conjunctivitis [Recovered/Resolved]
  - Bronchitis [Recovered/Resolved]

NARRATIVE: CASE EVENT DATE: 20240309
